FAERS Safety Report 5505396-5 (Version None)
Quarter: 2007Q4

REPORT INFORMATION
  Report Type: 
  Country: None (occurrence: None)
  Receive Date: 20071102
  Receipt Date: 20070820
  Transmission Date: 20080405
  Serious: Yes (Other)
  Sender: FDA-Public Use
  Company Number: US-MERCK-0707USA03616

PATIENT
  Age: 70 Year
  Sex: Female

DRUGS (3)
  1. JANUVIA [Suspect]
     Indication: TYPE 2 DIABETES MELLITUS
     Route: 048
     Dates: start: 20070601
  2. METFORMIN [Concomitant]
     Route: 048
  3. DIURETIC (UNSPECIFIED) [Concomitant]
     Route: 065

REACTIONS (4)
  - BLOOD CREATININE [None]
  - BUNDLE BRANCH BLOCK LEFT [None]
  - HYPERKALAEMIA [None]
  - MYOCARDIAL ISCHAEMIA [None]
